FAERS Safety Report 24809824 (Version 1)
Quarter: 2025Q1

REPORT INFORMATION
  Report Type: Spontaneous
  Country: US (occurrence: None)
  Receive Date: 20250103
  Receipt Date: 20250103
  Transmission Date: 20250409
  Serious: No
  Sender: FDA-CTU
  Company Number: None

PATIENT
  Sex: Male
  Weight: 0.0 kg

DRUGS (1)
  1. TALTZ [Suspect]
     Active Substance: IXEKIZUMAB
     Route: 058
     Dates: start: 20241001

REACTIONS (7)
  - Blindness [None]
  - Scleral discolouration [None]
  - Ocular icterus [None]
  - Corneal infection [None]
  - Joint swelling [None]
  - Osteoarthritis [None]
  - General physical health deterioration [None]
